FAERS Safety Report 8862465 (Version 1)
Quarter: 2012Q4

REPORT INFORMATION
  Report Type: 
  Country: US (occurrence: US)
  Receive Date: 20121026
  Receipt Date: 20121026
  Transmission Date: 20130627
  Serious: Yes (Hospitalization)
  Sender: FDA-Public Use
  Company Number: US-BAYER-2012-109515

PATIENT
  Age: 25 Year
  Sex: Female

DRUGS (4)
  1. YAZ [Suspect]
     Indication: DYSMENORRHEA
  2. YAZ [Suspect]
     Indication: PREMENSTRUAL SYNDROME
  3. PROVENTIL [Concomitant]
  4. CHANTIX [Concomitant]
     Indication: EX-TOBACCO USER

REACTIONS (1)
  - Pulmonary embolism [None]
